FAERS Safety Report 7361673-7 (Version None)
Quarter: 2011Q1

REPORT INFORMATION
  Report Type: 
  Country: None (occurrence: None)
  Receive Date: 20110318
  Receipt Date: 20110309
  Transmission Date: 20110831
  Serious: Yes (Hospitalization, Other)
  Sender: FDA-Public Use
  Company Number: US-JNJFOC-20110304811

PATIENT
  Sex: Female
  Weight: 77.11 kg

DRUGS (7)
  1. FENTANYL-100 [Suspect]
     Indication: NEURALGIA
     Route: 062
  2. AMLODIPINE [Concomitant]
     Indication: HYPERTENSION
     Route: 048
  3. DURAGESIC-50 [Suspect]
     Route: 062
  4. METFORMIN HCL [Concomitant]
     Indication: DIABETES MELLITUS
     Route: 048
  5. ATENOLOL [Concomitant]
     Indication: ANGINA PECTORIS
     Route: 048
  6. DURAGESIC-50 [Suspect]
     Indication: NEURALGIA
     Route: 062
  7. OMEPRAZOLE [Concomitant]
     Indication: GASTROOESOPHAGEAL REFLUX DISEASE
     Route: 048

REACTIONS (4)
  - SPINAL COLUMN STENOSIS [None]
  - NEUROPATHY PERIPHERAL [None]
  - DRUG INEFFECTIVE [None]
  - MUSCULOSKELETAL DISORDER [None]
